FAERS Safety Report 24547088 (Version 1)
Quarter: 2024Q4

REPORT INFORMATION
  Report Type: Report from Study
  Country: US (occurrence: US)
  Receive Date: 20241025
  Receipt Date: 20241025
  Transmission Date: 20250114
  Serious: Yes (Death)
  Sender: ABBVIE
  Company Number: US-ABBVIE-5973167

PATIENT
  Age: 89 Year
  Sex: Female

DRUGS (1)
  1. LUMIGAN [Suspect]
     Active Substance: BIMATOPROST
     Indication: Product used for unknown indication
     Dosage: FORM STRENGTH: 0.1MG
     Route: 047

REACTIONS (1)
  - Death [Fatal]

NARRATIVE: CASE EVENT DATE: 20240515
